FAERS Safety Report 5429227-7 (Version None)
Quarter: 2007Q3

REPORT INFORMATION
  Report Type: 
  Country: None (occurrence: None)
  Receive Date: 20070824
  Receipt Date: 20070810
  Transmission Date: 20080115
  Serious: Yes (Hospitalization)
  Sender: FDA-Public Use
  Company Number: 2007JP002160

PATIENT
  Sex: Female

DRUGS (4)
  1. TACROLIMUS [Suspect]
     Indication: RHEUMATOID ARTHRITIS
     Dosage: 1 MG, D, ORAL
     Route: 048
     Dates: start: 20060906, end: 20070306
  2. MOBIC [Concomitant]
  3. ALFAROL CAPSULE [Concomitant]
  4. PREDNISOLONE [Concomitant]

REACTIONS (1)
  - INTERSTITIAL LUNG DISEASE [None]
